FAERS Safety Report 10231893 (Version 1)
Quarter: 2014Q2

REPORT INFORMATION
  Report Type: Spontaneous
  Country: US (occurrence: US)
  Receive Date: 20140612
  Receipt Date: 20140612
  Transmission Date: 20141212
  Serious: No
  Sender: FDA-Public Use
  Company Number: US-BIOGENIDEC-2014BI050481

PATIENT
  Sex: Female

DRUGS (2)
  1. AVONEX [Suspect]
     Indication: MULTIPLE SCLEROSIS
     Route: 030
  2. AVONEX [Suspect]
     Indication: MULTIPLE SCLEROSIS
     Route: 030
     Dates: start: 20100813, end: 201105

REACTIONS (5)
  - Mobility decreased [Recovered/Resolved]
  - Hypoaesthesia [Recovered/Resolved]
  - Adverse event [Recovered/Resolved]
  - Fear of injection [Recovered/Resolved]
  - Urticaria [Unknown]
